FAERS Safety Report 5365669-6 (Version None)
Quarter: 2007Q2

REPORT INFORMATION
  Report Type: 
  Country: None (occurrence: None)
  Receive Date: 20070621
  Receipt Date: 20070608
  Transmission Date: 20071010
  Serious: Yes (Other)
  Sender: FDA-Public Use
  Company Number: FR-ELI_LILLY_AND_COMPANY-FR200706001059

PATIENT
  Age: 74 Year
  Sex: Female

DRUGS (10)
  1. FORTEO [Suspect]
     Indication: OSTEOPOROSIS
     Dosage: 20 UG, DAILY (1/D)
     Route: 058
     Dates: start: 20070430
  2. FLODIL [Concomitant]
  3. HALDOL [Concomitant]
  4. TERCIAN [Concomitant]
  5. TEGRETOL [Concomitant]
     Dosage: 2 D/F, DAILY (1/D)
  6. LEVOTHYROXINE SODIUM [Concomitant]
  7. LEPTICUR [Concomitant]
     Dosage: 2 D/F, DAILY (1/D)
  8. ZOLPIDEM [Concomitant]
  9. DEDROGYL [Concomitant]
  10. OROCAL [Concomitant]

REACTIONS (2)
  - ANAEMIA [None]
  - WEIGHT DECREASED [None]
